FAERS Safety Report 23896935 (Version 2)
Quarter: 2024Q2

REPORT INFORMATION
  Report Type: Spontaneous
  Country: GB (occurrence: GB)
  Receive Date: 20240524
  Receipt Date: 20240528
  Transmission Date: 20240716
  Serious: Yes (Other)
  Sender: FDA-Public Use
  Company Number: GB-PFIZER INC-202400174728

PATIENT
  Age: 2 Year

DRUGS (3)
  1. SIROLIMUS [Interacting]
     Active Substance: SIROLIMUS
     Indication: Autoimmune haemolytic anaemia
     Dosage: UNK
  2. RITUXIMAB [Interacting]
     Active Substance: RITUXIMAB
     Indication: Autoimmune haemolytic anaemia
     Dosage: UNK
  3. HUMAN IMMUNOGLOBULIN G [Interacting]
     Active Substance: HUMAN IMMUNOGLOBULIN G
     Indication: Autoimmune haemolytic anaemia
     Dosage: UNK
     Route: 042

REACTIONS (5)
  - Drug interaction [Unknown]
  - Myelosuppression [Unknown]
  - Hepatotoxicity [Unknown]
  - Off label use [Unknown]
  - Off label use [Unknown]
